FAERS Safety Report 9954172 (Version 4)
Quarter: 2014Q4

REPORT INFORMATION
  Report Type: Spontaneous
  Country: US (occurrence: US)
  Receive Date: 20140304
  Receipt Date: 20141112
  Transmission Date: 20150529
  Serious: Yes (Other)
  Sender: FDA-Public Use
  Company Number: US-PFIZER INC-2014059907

PATIENT
  Age: 53 Year
  Sex: Female
  Weight: 102 kg

DRUGS (6)
  1. LYRICA [Suspect]
     Active Substance: PREGABALIN
     Indication: NEURALGIA
     Dosage: 150 MG, 2X/DAY
     Dates: start: 2011
  2. LYRICA [Suspect]
     Active Substance: PREGABALIN
     Dosage: UNK
  3. LYRICA [Suspect]
     Active Substance: PREGABALIN
     Indication: NEUROPATHY PERIPHERAL
     Dosage: 480 MG, DAILY (255MG AT NIGHT AND 225MG IN MORNING)
  4. MORPHINE [Concomitant]
     Active Substance: MORPHINE
     Dosage: 60 MG, 3X/DAY
  5. MORPHINE [Concomitant]
     Active Substance: MORPHINE
     Dosage: 50 MG, 3X/DAY
  6. PERCOCET [Concomitant]
     Active Substance: ACETAMINOPHEN\OXYCODONE HYDROCHLORIDE
     Dosage: AT 10/325MG 2X/DAY AS NEEDED

REACTIONS (2)
  - Back disorder [Unknown]
  - Nerve injury [Unknown]

NARRATIVE: CASE EVENT DATE: 20110729
